FAERS Safety Report 6043494-0 (Version None)
Quarter: 2009Q1

REPORT INFORMATION
  Report Type: 
  Country: None (occurrence: None)
  Receive Date: 20090120
  Receipt Date: 20090116
  Transmission Date: 20090719
  Serious: Yes (Life-Threatening)
  Sender: FDA-Public Use
  Company Number: DE-BAYER-200911359GPV

PATIENT
  Sex: Female
  Weight: 62 kg

DRUGS (2)
  1. AVELOX [Suspect]
     Indication: PLEURISY
     Dosage: TOTAL DAILY DOSE: 400 MG  UNIT DOSE: 400 MG
     Route: 048
  2. LYRICA 50 [Concomitant]
     Indication: RESTLESS LEGS SYNDROME
     Route: 048

REACTIONS (4)
  - CONFUSIONAL STATE [None]
  - DIET REFUSAL [None]
  - DYSPHAGIA [None]
  - SPEECH DISORDER [None]
